FAERS Safety Report 5000709-5 (Version None)
Quarter: 2006Q2

REPORT INFORMATION
  Report Type: 
  Country: None (occurrence: None)
  Receive Date: 20060512
  Receipt Date: 20060421
  Transmission Date: 20061013
  Serious: Yes (Hospitalization)
  Sender: FDA-Public Use
  Company Number: AU-AMGEN-US177137

PATIENT
  Age: 53 Year
  Sex: Female

DRUGS (3)
  1. NEULASTA [Suspect]
     Indication: CHEMOTHERAPY
     Route: 065
     Dates: start: 20060414
  2. ADRIAMYCIN PFS [Concomitant]
     Route: 065
     Dates: start: 20060413
  3. CYCLOPHOSPHAMIDE [Concomitant]
     Route: 065
     Dates: start: 20060413

REACTIONS (5)
  - ABDOMINAL PAIN LOWER [None]
  - DIZZINESS [None]
  - NEUTROPENIC SEPSIS [None]
  - PERIPHERAL COLDNESS [None]
  - TREMOR [None]
